FAERS Safety Report 13953908 (Version 1)
Quarter: 2017Q3

REPORT INFORMATION
  Report Type: Spontaneous
  Country: US (occurrence: US)
  Receive Date: 20170911
  Receipt Date: 20170911
  Transmission Date: 20171128
  Serious: No
  Sender: FDA-Public Use
  Company Number: US-TEVA-751149USA

PATIENT
  Sex: Male
  Weight: 98.43 kg

DRUGS (3)
  1. HYDROXYZINE [Concomitant]
     Active Substance: HYDROXYZINE HYDROCHLORIDE
     Indication: ANXIETY
     Dosage: 100 MILLIGRAM DAILY;
     Route: 048
     Dates: start: 20170211
  2. VENLAFAXINE HYDROCHLORIDE, 75 MG [Suspect]
     Active Substance: VENLAFAXINE HYDROCHLORIDE
     Indication: ANXIETY
  3. VENLAFAXINE HYDROCHLORIDE, 75 MG [Suspect]
     Active Substance: VENLAFAXINE HYDROCHLORIDE
     Indication: DEPRESSION
     Dosage: 150 MILLIGRAM DAILY;
     Route: 048
     Dates: start: 20170211

REACTIONS (5)
  - Depression [Unknown]
  - Drug ineffective [Unknown]
  - Anxiety [Unknown]
  - Drug dispensing error [Unknown]
  - Hepatic enzyme increased [Unknown]

NARRATIVE: CASE EVENT DATE: 2017
